FAERS Safety Report 11624570 (Version 10)
Quarter: 2020Q1

REPORT INFORMATION
  Report Type: Report from Study
  Country: FR (occurrence: FR)
  Receive Date: 20151013
  Receipt Date: 20200210
  Transmission Date: 20200409
  Serious: Yes (Other)
  Sender: FDA-Public Use
  Company Number: PHHY2015FR120459

PATIENT
  Age: 29 Year
  Sex: Female
  Weight: 77 kg

DRUGS (4)
  1. STEROGYL [Concomitant]
     Active Substance: ERGOCALCIFEROL
     Indication: VITAMIN D DEFICIENCY
     Dosage: 3 DF, QD
     Route: 048
     Dates: start: 20130408
  2. SIGNIFOR [Suspect]
     Active Substance: PASIREOTIDE DIASPARTATE
     Dosage: 1.2 MG, BID
     Route: 058
     Dates: start: 20140724, end: 20150126
  3. VOGALENE [Concomitant]
     Active Substance: METOPIMAZINE
     Indication: NAUSEA
     Dosage: 1 DF, QD
     Route: 048
     Dates: start: 20140724
  4. SIGNIFOR [Suspect]
     Active Substance: PASIREOTIDE DIASPARTATE
     Indication: PITUITARY-DEPENDENT CUSHING^S SYNDROME
     Dosage: UNK
     Route: 065
     Dates: start: 20130430, end: 20140723

REACTIONS (14)
  - Cholestasis [Recovered/Resolved]
  - Blood alkaline phosphatase increased [Recovered/Resolved]
  - Aspartate aminotransferase increased [Recovered/Resolved]
  - Diarrhoea [Recovered/Resolved]
  - Abdominal distension [Recovered/Resolved]
  - Irregular breathing [Unknown]
  - Galactorrhoea [Unknown]
  - Alanine aminotransferase increased [Recovered/Resolved]
  - Vomiting [Recovered/Resolved]
  - Gastritis [Unknown]
  - Gamma-glutamyltransferase increased [Unknown]
  - Constipation [Unknown]
  - Abdominal pain [Recovered/Resolved]
  - Hepatic steatosis [Unknown]

NARRATIVE: CASE EVENT DATE: 20150126
